FAERS Safety Report 9546607 (Version 1)
Quarter: 2013Q3

REPORT INFORMATION
  Report Type: Spontaneous
  Country: US (occurrence: US)
  Receive Date: 20130924
  Receipt Date: 20130924
  Transmission Date: 20140515
  Serious: Yes (Hospitalization)
  Sender: FDA-Public Use
  Company Number: US-AMGEN-USASP2013066505

PATIENT
  Age: 43 Year
  Sex: Female

DRUGS (1)
  1. ENBREL [Suspect]
     Indication: PSORIASIS
     Dosage: 50 MG, 2 TIMES/WK
     Route: 065
     Dates: start: 2009

REACTIONS (5)
  - Benign neoplasm of thyroid gland [Not Recovered/Not Resolved]
  - Weight decreased [Unknown]
  - Menopause [Recovered/Resolved]
  - Psychological trauma [Unknown]
  - Psoriasis [Not Recovered/Not Resolved]
